FAERS Safety Report 7590819-0 (Version None)
Quarter: 2011Q3

REPORT INFORMATION
  Report Type: 
  Country: None (occurrence: None)
  Receive Date: 20110705
  Receipt Date: 20110628
  Transmission Date: 20111222
  Serious: Yes (Disabling, Other)
  Sender: FDA-Public Use
  Company Number: US-PFIZER INC-2011144342

PATIENT
  Sex: Female
  Weight: 77.098 kg

DRUGS (1)
  1. EFFEXOR XR [Suspect]
     Indication: ANXIETY
     Dosage: UNK
     Dates: end: 20110626

REACTIONS (2)
  - VISUAL IMPAIRMENT [None]
  - WITHDRAWAL SYNDROME [None]
